FAERS Safety Report 10258109 (Version 3)
Quarter: 2014Q3

REPORT INFORMATION
  Report Type: Spontaneous
  Country: US (occurrence: None)
  Receive Date: 20140623
  Receipt Date: 20140730
  Transmission Date: 20150326
  Serious: Yes (Hospitalization)
  Sender: FDA-Public Use
  Company Number: UNT-2014-001427

PATIENT
  Age: 68 Year
  Sex: Female
  Weight: 96.2 kg

DRUGS (2)
  1. ADCIRCA [Concomitant]
     Active Substance: TADALAFIL
  2. REMODULIN [Suspect]
     Active Substance: TREPROSTINIL
     Indication: COR PULMONALE CHRONIC
     Dosage: CONTINUING
     Route: 058
     Dates: start: 20140515

REACTIONS (4)
  - Transient ischaemic attack [None]
  - Pain in extremity [None]
  - Infusion site erythema [None]
  - Infusion site pain [None]
